FAERS Safety Report 17065672 (Version 1)
Quarter: 2019Q4

REPORT INFORMATION
  Report Type: Spontaneous
  Country: US (occurrence: US)
  Receive Date: 20191122
  Receipt Date: 20191122
  Transmission Date: 20200122
  Serious: Yes (Other)
  Sender: FDA-Public Use
  Company Number: US-JNJFOC-20191119531

PATIENT
  Age: 33 Year
  Sex: Male
  Weight: 94.43 kg

DRUGS (7)
  1. MELATONIN [Concomitant]
     Active Substance: MELATONIN
  2. DEPAKOTE [Concomitant]
     Active Substance: DIVALPROEX SODIUM
  3. PROZAC [Concomitant]
     Active Substance: FLUOXETINE HYDROCHLORIDE
     Dosage: STRENGTH - 60 MG DAILY
  4. COGENTIN [Concomitant]
     Active Substance: BENZTROPINE MESYLATE
  5. MINIPRESS [Concomitant]
     Active Substance: PRAZOSIN HYDROCHLORIDE
  6. THORAZINE [Concomitant]
     Active Substance: CHLORPROMAZINE
  7. INVEGA TRINZA [Suspect]
     Active Substance: PALIPERIDONE PALMITATE
     Indication: PRODUCT USED FOR UNKNOWN INDICATION
     Route: 030
     Dates: start: 20191017

REACTIONS (5)
  - Product dose omission [Unknown]
  - Depressed mood [Unknown]
  - Psychotic disorder [Unknown]
  - Catatonia [Unknown]
  - Suicidal ideation [Unknown]

NARRATIVE: CASE EVENT DATE: 20191108
